FAERS Safety Report 9773806 (Version 2)
Quarter: 2013Q4

REPORT INFORMATION
  Report Type: Spontaneous
  Country: CA (occurrence: CA)
  Receive Date: 20131220
  Receipt Date: 20131223
  Transmission Date: 20140711
  Serious: Yes (Hospitalization)
  Sender: FDA-Public Use
  Company Number: CA-ROCHE-1322171

PATIENT
  Age: 74 Year
  Sex: Female

DRUGS (4)
  1. XOLAIR [Suspect]
     Indication: ASTHMA
     Route: 058
     Dates: start: 20110203
  2. ADVAIR [Concomitant]
  3. SINGULAIR [Concomitant]
  4. OXEZE [Concomitant]

REACTIONS (3)
  - Pulmonary oedema [Unknown]
  - Asthenia [Unknown]
  - Fatigue [Unknown]
